FAERS Safety Report 6988796-6 (Version None)
Quarter: 2010Q3

REPORT INFORMATION
  Report Type: 
  Country: None (occurrence: None)
  Receive Date: 20100827
  Receipt Date: 20091125
  Transmission Date: 20110219
  Serious: Yes (Disabling, Other)
  Sender: FDA-Public Use
  Company Number: KADN20090167

PATIENT
  Sex: Female

DRUGS (2)
  1. KADIAN [Suspect]
  2. OXYCONTIN [Suspect]

REACTIONS (10)
  - AMNESIA [None]
  - AORTIC ANEURYSM [None]
  - CONVULSION [None]
  - ELECTROENCEPHALOGRAM ABNORMAL [None]
  - MELAENA [None]
  - STARING [None]
  - UNRESPONSIVE TO STIMULI [None]
  - UPPER LIMB FRACTURE [None]
  - VICTIM OF ABUSE [None]
  - WEIGHT DECREASED [None]
